FAERS Safety Report 7460713-4 (Version None)
Quarter: 2011Q2

REPORT INFORMATION
  Report Type: 
  Country: None (occurrence: None)
  Receive Date: 20110505
  Receipt Date: 20110428
  Transmission Date: 20111010
  Serious: Yes (Death, Congenital Anomaly)
  Sender: FDA-Public Use
  Company Number: DE-US-EMD SERONO, INC.-7056310

PATIENT

DRUGS (1)
  1. REBIF [Suspect]
     Indication: MULTIPLE SCLEROSIS
     Route: 064
     Dates: start: 20100701, end: 20110110

REACTIONS (2)
  - DWARFISM [None]
  - CARDIAC ARREST [None]
